FAERS Safety Report 4541069-3 (Version None)
Quarter: 2004Q4

REPORT INFORMATION
  Report Type: 
  Country: None (occurrence: None)
  Receive Date: 20041229
  Receipt Date: 20041223
  Transmission Date: 20050328
  Serious: Yes (Death)
  Sender: FDA-Public Use
  Company Number: US-JNJFOC-20041105300

PATIENT
  Sex: Male

DRUGS (6)
  1. DURAGESIC-100 [Suspect]
     Route: 062
  2. DURAGESIC [Suspect]
     Route: 062
  3. OXYCODONE HCL [Concomitant]
  4. METHYLPHENIDATE [Concomitant]
  5. MEGACE [Concomitant]
  6. DEXAMETHASONE [Concomitant]

REACTIONS (2)
  - MALIGNANT NEOPLASM PROGRESSION [None]
  - PAIN [None]
